FAERS Safety Report 8947676 (Version 2)
Quarter: 2012Q4

REPORT INFORMATION
  Report Type: 
  Country: FR (occurrence: FR)
  Receive Date: 20121205
  Receipt Date: 20121210
  Transmission Date: 20130627
  Serious: Yes (Life-Threatening, Hospitalization, Other)
  Sender: FDA-Public Use
  Company Number: PHHY2012FR110539

PATIENT
  Age: 59 Year
  Sex: Male

DRUGS (10)
  1. CICLOSPORIN [Suspect]
     Indication: RENAL TRANSPLANT
  2. COLCHICINE [Interacting]
     Indication: GOUT
     Dosage: 3 mg, daily
  3. MYCOPHENOLATE MOFETIL [Concomitant]
     Indication: RENAL TRANSPLANT
  4. PREDNISONE [Concomitant]
     Indication: RENAL TRANSPLANT
  5. INSULIN [Concomitant]
     Indication: TYPE 2 DIABETES MELLITUS
  6. ASPIRIN [Concomitant]
  7. ATORVASTATIN [Concomitant]
  8. OMEPRAZOLE [Concomitant]
  9. BISOPROLOL [Concomitant]
  10. KETOPROFEN [Concomitant]
     Indication: GOUT
     Dosage: 150 mg, BID

REACTIONS (15)
  - Rhabdomyolysis [Recovered/Resolved]
  - Myalgia [Recovered/Resolved]
  - Urine output decreased [Recovered/Resolved]
  - Quadriparesis [Recovered/Resolved]
  - Haematotoxicity [Recovered/Resolved]
  - Haemoglobin decreased [Recovered/Resolved]
  - Renal failure [Recovered/Resolved]
  - Fluid overload [Recovered/Resolved]
  - Toxicity to various agents [Unknown]
  - Confusional state [Recovered/Resolved]
  - Diarrhoea [Recovered/Resolved]
  - Abdominal pain [Recovered/Resolved]
  - Alopecia [Recovered/Resolved]
  - Drug interaction [Unknown]
  - Overdose [Unknown]
